FAERS Safety Report 7736649-8 (Version None)
Quarter: 2011Q3

REPORT INFORMATION
  Report Type: 
  Country: None (occurrence: None)
  Receive Date: 20110902
  Receipt Date: 20110822
  Transmission Date: 20111222
  Serious: Yes (Death, Hospitalization, Other)
  Sender: FDA-Public Use
  Company Number: 2011MA012357

PATIENT
  Age: 5 Year
  Sex: Male

DRUGS (8)
  1. ETOPOSIDE [Suspect]
     Indication: NEOPLASM
     Dosage: 1.1 GM/M2;
  2. PREDNISOLONE [Suspect]
     Indication: DYSPNOEA
     Dosage: 2 MG/KG; IV
     Route: 042
  3. PREDNISOLONE [Suspect]
     Indication: HYPOXIA
     Dosage: 2 MG/KG; IV
     Route: 042
  4. VINCRISTINE [Suspect]
     Indication: NEOPLASM
     Dosage: 3 MG/M2
  5. CYTARABINE [Suspect]
     Indication: NEOPLASM
     Dosage: 26 GM/M2;
  6. EPIRUBICIN HYDROCHLORIDE [Suspect]
     Indication: NEOPLASM
     Dosage: 360 MG/M2
  7. CYCLOPHOSPHAMIDE [Suspect]
     Indication: NEOPLASM
     Dosage: 9 GM/M2;
  8. METHOTREXATE [Suspect]
     Indication: NEOPLASM
     Dosage: 6 GM/M2;

REACTIONS (14)
  - HYPERKALAEMIA [None]
  - HYPERPHOSPHATAEMIA [None]
  - TRICUSPID VALVE INCOMPETENCE [None]
  - DILATATION VENTRICULAR [None]
  - HYPOCALCAEMIA [None]
  - HAEMODIALYSIS [None]
  - TOXIC EPIDERMAL NECROLYSIS [None]
  - TUMOUR LYSIS SYNDROME [None]
  - PULMONARY VENO-OCCLUSIVE DISEASE [None]
  - RIGHT ATRIAL DILATATION [None]
  - PLEURAL EFFUSION [None]
  - HYPERURICAEMIA [None]
  - DYSPNOEA [None]
  - CARDIAC FAILURE [None]
